FAERS Safety Report 21380106 (Version 2)
Quarter: 2022Q4

REPORT INFORMATION
  Report Type: Spontaneous
  Country: IT (occurrence: IT)
  Receive Date: 20220927
  Receipt Date: 20221027
  Transmission Date: 20230113
  Serious: Yes (Other)
  Sender: FDA-Public Use
  Company Number: None

PATIENT
  Age: 66 Year
  Sex: Female
  Weight: 60 kg

DRUGS (4)
  1. FILGRASTIM [Suspect]
     Active Substance: FILGRASTIM
     Indication: Colony stimulating factor therapy
     Dosage: 30 MIU DAILY FOR SIX DAYS THEN TWO MORE VIALS ARE ADMINISTERED FROM 15 TO 16 JULY
     Route: 058
     Dates: start: 20220709, end: 20220714
  2. DOXORUBICIN [Concomitant]
     Active Substance: DOXORUBICIN
     Indication: Alveolar rhabdomyosarcoma
  3. IFOSFAMIDE [Concomitant]
     Active Substance: IFOSFAMIDE
     Indication: Alveolar rhabdomyosarcoma
     Dosage: 3000 MG /MQ G1,2,3 Q 21
     Route: 042
     Dates: start: 20220705, end: 20220706
  4. VINCRISTINE [Concomitant]
     Active Substance: VINCRISTINE
     Indication: Alveolar rhabdomyosarcoma
     Dosage: 2MG/Q21
     Route: 042

REACTIONS (2)
  - Neutrophil count decreased [Recovered/Resolved]
  - Thrombocytopenia [Recovered/Resolved]

NARRATIVE: CASE EVENT DATE: 20220714
